FAERS Safety Report 25269318 (Version 1)
Quarter: 2025Q2

REPORT INFORMATION
  Report Type: Spontaneous
  Country: US (occurrence: US)
  Receive Date: 20250505
  Receipt Date: 20250505
  Transmission Date: 20250717
  Serious: No
  Sender: ASTELLAS
  Company Number: US-ASTELLAS-2025-AER-011231

PATIENT

DRUGS (2)
  1. VYLOY [Suspect]
     Active Substance: ZOLBETUXIMAB-CLZB
     Indication: Product used for unknown indication
     Route: 065
     Dates: start: 20250217, end: 202502
  2. VYLOY [Suspect]
     Active Substance: ZOLBETUXIMAB-CLZB
     Route: 065
     Dates: start: 202502, end: 202502

REACTIONS (3)
  - Nausea [Unknown]
  - Vomiting [Unknown]
  - Incorrect dose administered [Unknown]

NARRATIVE: CASE EVENT DATE: 20250201
